FAERS Safety Report 19763373 (Version 1)
Quarter: 2021Q3

REPORT INFORMATION
  Report Type: Spontaneous
  Country: FR (occurrence: FR)
  Receive Date: 20210830
  Receipt Date: 20210830
  Transmission Date: 20211014
  Serious: Yes (Hospitalization)
  Sender: FDA-Public Use
  Company Number: FR-MYLANLABS-2021M1055325

PATIENT
  Age: 32 Year
  Sex: Female
  Weight: 45.8 kg

DRUGS (17)
  1. PARACETAMOL [Concomitant]
     Active Substance: ACETAMINOPHEN
     Dosage: UNK
     Route: 048
  2. ACUPAN [Concomitant]
     Active Substance: NEFOPAM HYDROCHLORIDE
     Dosage: UNK
     Route: 048
  3. RISPERDAL [Concomitant]
     Active Substance: RISPERIDONE
     Dosage: UNK
     Route: 048
  4. METHYLPREDNISOLONE. [Suspect]
     Active Substance: METHYLPREDNISOLONE
     Indication: POLYCHONDRITIS
     Dosage: 120 MILLIGRAM, QD
     Route: 042
     Dates: start: 20201208, end: 20201211
  5. PREDNISONE. [Suspect]
     Active Substance: PREDNISONE
     Indication: POLYCHONDRITIS
     Dosage: 60 MILLIGRAM, QD
     Route: 048
     Dates: start: 20201204
  6. OXYNORMORO [Concomitant]
     Active Substance: OXYCODONE HYDROCHLORIDE
     Dosage: UNK
     Route: 048
  7. MOVICOL [Concomitant]
     Active Substance: POLYETHYLENE GLYCOL 3350\POTASSIUM CHLORIDE\SODIUM BICARBONATE\SODIUM CHLORIDE
     Dosage: UNK
     Route: 048
  8. PREDNISONE. [Concomitant]
     Active Substance: PREDNISONE
     Dosage: UNK
     Route: 048
  9. PANTOPRAZOLE [Concomitant]
     Active Substance: PANTOPRAZOLE
     Dosage: UNK
     Route: 048
  10. IMUREL                             /00001501/ [Concomitant]
     Active Substance: AZATHIOPRINE SODIUM
     Dosage: UNK
     Route: 048
  11. AMLOR [Concomitant]
     Active Substance: AMLODIPINE BESYLATE
     Dosage: UNK
     Route: 048
  12. MONOPROST [Concomitant]
     Active Substance: LATANOPROST
     Dosage: UNK
     Route: 047
  13. TEMESTA                            /00273201/ [Concomitant]
     Active Substance: LORAZEPAM
     Dosage: UNK
     Route: 048
  14. OLANZAPINE. [Concomitant]
     Active Substance: OLANZAPINE
     Dosage: UNK
     Route: 048
  15. OXYCODONE [Concomitant]
     Active Substance: OXYCODONE
     Dosage: UNK
     Route: 048
  16. KARDEGIC [Concomitant]
     Active Substance: ASPIRIN DL-LYSINE
     Dosage: UNK
     Route: 048
  17. PRAXILENE [Concomitant]
     Active Substance: NAFRONYL
     Dosage: UNK
     Route: 048

REACTIONS (2)
  - Psychiatric decompensation [Not Recovered/Not Resolved]
  - Mania [Not Recovered/Not Resolved]

NARRATIVE: CASE EVENT DATE: 20201219
